FAERS Safety Report 7382413-1 (Version None)
Quarter: 2011Q1

REPORT INFORMATION
  Report Type: 
  Country: None (occurrence: None)
  Receive Date: 20110329
  Receipt Date: 20110310
  Transmission Date: 20110831
  Serious: Yes (Other)
  Sender: FDA-Public Use
  Company Number: US-BAYER-2011-026848

PATIENT
  Sex: Female

DRUGS (2)
  1. YAZ [Suspect]
  2. ASACOL [Concomitant]
     Dosage: UNK

REACTIONS (1)
  - PANCREATITIS [None]
